FAERS Safety Report 12862052 (Version 1)
Quarter: 2016Q4

REPORT INFORMATION
  Report Type: Spontaneous
  Country: SI (occurrence: SI)
  Receive Date: 20161019
  Receipt Date: 20161019
  Transmission Date: 20170207
  Serious: Yes (Life-Threatening, Hospitalization)
  Sender: FDA-Public Use
  Company Number: SI-TEVA-699746ISR

PATIENT
  Age: 48 Year
  Sex: Female

DRUGS (7)
  1. ENDOXAN [Suspect]
     Active Substance: CYCLOPHOSPHAMIDE
     Indication: BREAST CANCER
     Route: 042
     Dates: start: 20160916, end: 20160921
  2. EMEND [Concomitant]
     Active Substance: APREPITANT
     Route: 048
  3. PANTHOL 120 MG [Concomitant]
     Active Substance: DEXPANTHENOL
     Route: 048
  4. ACIPAN 20 MG [Concomitant]
     Active Substance: PANTOPRAZOLE SODIUM
     Route: 048
  5. FLUOROURACIL ACCORD 50MG/ML [Suspect]
     Active Substance: FLUOROURACIL
     Indication: BREAST CANCER
     Route: 042
     Dates: start: 20160916, end: 20160921
  6. EPISINDAN 2 MG/ML [Suspect]
     Active Substance: EPIRUBICIN
     Indication: BREAST CANCER
     Route: 042
     Dates: start: 20160916, end: 20160921
  7. LEXAURIN 1,5 MG [Concomitant]
     Active Substance: BROMAZEPAM
     Route: 048

REACTIONS (6)
  - Hypocalcaemia [Recovered/Resolved]
  - Hyponatraemia [Recovered/Resolved]
  - Confusional state [Recovered/Resolved]
  - Brain oedema [Recovered/Resolved]
  - Hypokalaemia [Recovered/Resolved]
  - Epilepsy [Recovered/Resolved]

NARRATIVE: CASE EVENT DATE: 20160916
